FAERS Safety Report 10427819 (Version 4)
Quarter: 2015Q1

REPORT INFORMATION
  Report Type: Spontaneous
  Country: US (occurrence: US)
  Receive Date: 20140903
  Receipt Date: 20150310
  Transmission Date: 20150720
  Serious: Yes (Other)
  Sender: FDA-Public Use
  Company Number: US-BAYER-2014-130408

PATIENT
  Age: 25 Year
  Sex: Female
  Weight: 117.91 kg

DRUGS (9)
  1. MIRENA [Suspect]
     Active Substance: LEVONORGESTREL
     Indication: CONTRACEPTION
     Dosage: 20 MCG/24HR, CONT
     Route: 015
     Dates: start: 20080812, end: 20120712
  2. CEFTRIAXONE. [Concomitant]
     Active Substance: CEFTRIAXONE
     Dosage: 250 MG, UNK
     Dates: start: 20120706
  3. ALEVE [Concomitant]
     Active Substance: NAPROXEN SODIUM
  4. PERCOCET [Concomitant]
     Active Substance: ACETAMINOPHEN\OXYCODONE HYDROCHLORIDE
  5. METRONIDAZOLE. [Concomitant]
     Active Substance: METRONIDAZOLE
  6. DOXYCYCLINE. [Concomitant]
     Active Substance: DOXYCYCLINE
  7. MIRENA [Suspect]
     Active Substance: LEVONORGESTREL
     Indication: MENORRHAGIA
  8. DILAUDID [Concomitant]
     Active Substance: HYDROMORPHONE HYDROCHLORIDE
  9. ROCEPHIN [Concomitant]
     Active Substance: CEFTRIAXONE SODIUM

REACTIONS (8)
  - Bacterial vaginosis [None]
  - Dyspareunia [None]
  - Device defective [None]
  - Pelvic inflammatory disease [None]
  - Injury [None]
  - Pain [None]
  - Pelvic pain [None]
  - Device issue [None]

NARRATIVE: CASE EVENT DATE: 200810
